FAERS Safety Report 7288367-0 (Version None)
Quarter: 2011Q1

REPORT INFORMATION
  Report Type: 
  Country: None (occurrence: None)
  Receive Date: 20110211
  Receipt Date: 20110208
  Transmission Date: 20110831
  Serious: Yes (Other)
  Sender: FDA-Public Use
  Company Number: GB-ROCHE-755953

PATIENT
  Age: 21 Year
  Sex: Female

DRUGS (4)
  1. ACETAZOLAMIDE [Suspect]
     Route: 065
  2. CLONAZEPAM [Suspect]
     Route: 065
  3. LAMOTRIGINE [Suspect]
     Dosage: DOSE: 100 MG/125 MG
     Route: 065
  4. LEVETIRACETAM [Suspect]
     Dosage: DRUG NAME: KEPPRA
     Route: 065

REACTIONS (7)
  - SPEECH DISORDER [None]
  - MUSCLE TWITCHING [None]
  - FATIGUE [None]
  - FEAR [None]
  - NERVOUSNESS [None]
  - FEELING ABNORMAL [None]
  - GRAND MAL CONVULSION [None]
